FAERS Safety Report 6562559-8 (Version None)
Quarter: 2010Q1

REPORT INFORMATION
  Report Type: 
  Country: None (occurrence: None)
  Receive Date: 20100130
  Receipt Date: 20091112
  Transmission Date: 20100710
  Serious: No
  Sender: FDA-Public Use
  Company Number: US-ABBOTT-09P-163-0608664-00

PATIENT
  Sex: Female
  Weight: 79.45 kg

DRUGS (4)
  1. HUMIRA [Suspect]
     Indication: RHEUMATOID ARTHRITIS
     Dates: start: 20090101
  2. METHOTREXATE [Concomitant]
     Indication: RHEUMATOID ARTHRITIS
  3. ABILIFY [Concomitant]
     Indication: BIPOLAR DISORDER
  4. DIOVAN [Concomitant]
     Indication: HYPERTENSION

REACTIONS (2)
  - INJECTION SITE PAIN [None]
  - MUSCULOSKELETAL STIFFNESS [None]
